FAERS Safety Report 23105654 (Version 1)
Quarter: 2023Q4

REPORT INFORMATION
  Report Type: Spontaneous
  Country: US (occurrence: None)
  Receive Date: 20231023
  Receipt Date: 20231023
  Transmission Date: 20240110
  Serious: Yes (Life-Threatening, Hospitalization)
  Sender: FDA-Public Use
  Company Number: None

PATIENT
  Age: 67 Year
  Sex: Male
  Weight: 91 kg

DRUGS (1)
  1. TORSEMIDE [Suspect]
     Active Substance: TORSEMIDE
     Dosage: FREQUENCY : DAILY;?
     Route: 048
     Dates: start: 20220730

REACTIONS (2)
  - Hypokalaemia [None]
  - Cardiac failure congestive [None]

NARRATIVE: CASE EVENT DATE: 20230225
